FAERS Safety Report 15855302 (Version 2)
Quarter: 2019Q1

REPORT INFORMATION
  Report Type: Report from Study
  Country: PK (occurrence: PK)
  Receive Date: 20190122
  Receipt Date: 20190213
  Transmission Date: 20190417
  Serious: Yes (Death)
  Sender: FDA-Public Use
  Company Number: PHHY2019PK013254

PATIENT
  Sex: Male
  Weight: 56 kg

DRUGS (2)
  1. ELIDEL [Suspect]
     Active Substance: PIMECROLIMUS
     Indication: PRODUCT USED FOR UNKNOWN INDICATION
     Route: 065
  2. GLIVEC [Suspect]
     Active Substance: IMATINIB MESYLATE
     Indication: THYROID CANCER METASTATIC
     Dosage: 4 DF, BID (800 MG)
     Route: 048
     Dates: start: 20180926

REACTIONS (2)
  - Disease progression [Fatal]
  - Product use in unapproved indication [Unknown]
